FAERS Safety Report 5661717-4 (Version None)
Quarter: 2008Q1

REPORT INFORMATION
  Report Type: 
  Country: None (occurrence: None)
  Receive Date: 20080312
  Receipt Date: 20080307
  Transmission Date: 20080703
  Serious: Yes (Death)
  Sender: FDA-Public Use
  Company Number: B0510312A

PATIENT
  Age: 88 Year
  Sex: Female
  Weight: 31 kg

DRUGS (11)
  1. ARIXTRA [Suspect]
     Indication: THROMBOSIS PROPHYLAXIS
     Dosage: 1.5MG PER DAY
     Route: 058
     Dates: start: 20080130, end: 20080204
  2. CRAVIT [Concomitant]
     Indication: CYSTITIS
     Dosage: 100MG THREE TIMES PER DAY
     Route: 048
     Dates: start: 20080126, end: 20080128
  3. FAMOTIDINE [Concomitant]
     Indication: PREMEDICATION
     Dosage: 20MG PER DAY
     Route: 042
     Dates: start: 20080129, end: 20080129
  4. FENTANYL [Concomitant]
     Indication: PAIN
     Dosage: .2MG PER DAY
     Route: 042
     Dates: start: 20080129, end: 20080129
  5. PERDIPINE [Concomitant]
     Indication: PROCEDURAL HYPERTENSION
     Dosage: 20MG PER DAY
     Route: 042
     Dates: start: 20080129, end: 20080129
  6. HALOSPOR [Concomitant]
     Indication: INFECTION PROPHYLAXIS
     Dosage: 1G TWICE PER DAY
     Route: 042
     Dates: start: 20080130, end: 20080202
  7. PEON [Concomitant]
     Indication: PAIN
     Dosage: 240MG PER DAY
     Route: 048
     Dates: start: 20080130, end: 20080204
  8. MEIACT [Concomitant]
     Indication: INFECTION PROPHYLAXIS
     Dosage: 300MG PER DAY
     Route: 048
     Dates: start: 20080203, end: 20080204
  9. SELBEX [Concomitant]
     Indication: GASTRITIS PROPHYLAXIS
     Dosage: 150MG PER DAY
     Route: 048
     Dates: start: 20080130, end: 20080204
  10. SULPIRIDE [Concomitant]
     Dosage: 100MG PER DAY
     Route: 048
     Dates: start: 20080123, end: 20080204
  11. PERDIPINE [Concomitant]
     Dosage: 10MG PER DAY
     Route: 042
     Dates: start: 20080129, end: 20080129

REACTIONS (8)
  - ASPHYXIA [None]
  - ASPIRATION [None]
  - HAEMATEMESIS [None]
  - ORAL INTAKE REDUCED [None]
  - RESPIRATORY ARREST [None]
  - STRESS [None]
  - UPPER GASTROINTESTINAL HAEMORRHAGE [None]
  - VOMITING [None]
